FAERS Safety Report 5087637-4 (Version None)
Quarter: 2006Q3

REPORT INFORMATION
  Report Type: 
  Country: None (occurrence: None)
  Receive Date: 20060824
  Receipt Date: 20060815
  Transmission Date: 20061208
  Serious: Yes (Death, Hospitalization)
  Sender: FDA-Public Use
  Company Number: US-JNJFOC-20060202615

PATIENT
  Sex: Female
  Weight: 50 kg

DRUGS (19)
  1. REMICADE [Suspect]
     Route: 042
  2. REMICADE [Suspect]
     Route: 042
  3. REMICADE [Suspect]
     Route: 042
  4. REMICADE [Suspect]
     Route: 042
  5. REMICADE [Suspect]
     Indication: PSORIATIC ARTHROPATHY
     Route: 042
  6. LASIX [Concomitant]
  7. BUSPAR [Concomitant]
  8. VICODIN [Concomitant]
  9. CALTRATE [Concomitant]
  10. COUMADIN [Concomitant]
  11. CAPTOPRIL [Concomitant]
  12. DIGOXIN [Concomitant]
  13. PREDNISONE [Concomitant]
  14. ONE SOURCE [Concomitant]
  15. CENTRUM [Concomitant]
  16. DARVOCET [Concomitant]
  17. LEXAPRO [Concomitant]
  18. TENORMIN [Concomitant]
  19. METHOTREXATE [Concomitant]

REACTIONS (4)
  - INTERSTITIAL LUNG DISEASE [None]
  - PANCYTOPENIA [None]
  - PNEUMONIA FUNGAL [None]
  - RENAL FAILURE [None]
